FAERS Safety Report 8619670-7 (Version None)
Quarter: 2012Q3

REPORT INFORMATION
  Report Type: 
  Country: None (occurrence: None)
  Receive Date: 20120824
  Receipt Date: 20120821
  Transmission Date: 20120928
  Serious: Yes (Hospitalization, Other)
  Sender: FDA-Public Use
  Company Number: FR-PFIZER INC-2012175556

PATIENT
  Age: 73 Year
  Sex: Female

DRUGS (15)
  1. HUMALOG [Concomitant]
     Dosage: UNK
  2. LYRICA [Concomitant]
     Dosage: 75 MG, 2X/DAY
  3. LASIX [Concomitant]
     Dosage: 40 MG, 1X/DAY
  4. ALDACTONE [Suspect]
     Dosage: 50 MG, 1X/DAY
     Route: 048
     Dates: end: 20120626
  5. LEVOFLOXACIN [Suspect]
     Dosage: 500 MG, 2X/DAY
     Route: 048
     Dates: start: 20120525, end: 20120626
  6. OXYCODONE HYDROCHLORIDE [Concomitant]
     Indication: PAIN
     Dosage: AS NEEDED
  7. KETOPROFEN [Concomitant]
     Dosage: 150 MG, 1X/DAY
  8. ORBENIN CAP [Suspect]
     Dosage: 3 G, 3X/DAY
     Route: 042
     Dates: start: 20120525, end: 20120626
  9. ANAFRANIL [Suspect]
     Indication: DEPRESSION
     Dosage: 75 MG, 1X/DAY
     Route: 048
     Dates: start: 20120501, end: 20120626
  10. PENICILLIN G SODIUM [Concomitant]
     Dosage: 1 MIU, 4X/DAY
     Route: 042
     Dates: start: 20120515, end: 20120524
  11. CLINDAMYCIN HCL [Concomitant]
     Dosage: 600 MG, 3X/DAY
     Route: 042
     Dates: start: 20120515, end: 20120524
  12. NEXIUM [Concomitant]
     Dosage: 20 MG, 2X/DAY
  13. PREDNISONE TAB [Concomitant]
     Dosage: 20 MG, 4X/DAY
  14. OXYCONTIN [Concomitant]
     Dosage: 2X/DAY
  15. GLUCOPHAGE [Concomitant]
     Dosage: 1000 MG, 3X/DAY

REACTIONS (6)
  - SHOCK HAEMORRHAGIC [None]
  - NECROTISING FASCIITIS [None]
  - CHOLESTASIS [None]
  - CYTOLYTIC HEPATITIS [None]
  - DERMO-HYPODERMITIS [None]
  - FUNGAL OESOPHAGITIS [None]
